FAERS Safety Report 6819527-8 (Version None)
Quarter: 2010Q3

REPORT INFORMATION
  Report Type: 
  Country: None (occurrence: None)
  Receive Date: 20100707
  Receipt Date: 20100705
  Transmission Date: 20110219
  Serious: Yes (Death, Hospitalization)
  Sender: FDA-Public Use
  Company Number: PHHY2010CL16497

PATIENT
  Age: 85 Year
  Sex: Female

DRUGS (2)
  1. EXELON [Suspect]
     Indication: DEMENTIA
     Dosage: UNK,UNK
  2. MEMANTINE HCL [Concomitant]
     Dosage: UNK,UNK

REACTIONS (1)
  - MALNUTRITION [None]
